FAERS Safety Report 9973115 (Version 1)
Quarter: 2014Q1

REPORT INFORMATION
  Report Type: Report from Study
  Country: PR (occurrence: PR)
  Receive Date: 20140306
  Receipt Date: 20140306
  Transmission Date: 20141002
  Serious: No
  Sender: FDA-Public Use
  Company Number: PR-ABBVIE-13P-131-1157386-00

PATIENT
  Sex: Female
  Weight: 55.84 kg

DRUGS (4)
  1. HUMIRA [Suspect]
     Indication: RHEUMATOID ARTHRITIS
     Route: 058
     Dates: start: 2008
  2. PRILOSEC [Concomitant]
     Indication: PROPHYLAXIS AGAINST GASTROINTESTINAL ULCER
     Route: 048
  3. METHOTREXATE [Concomitant]
     Indication: RHEUMATOID ARTHRITIS
     Dosage: 1/4 MILIGRAMS
  4. B12 [Concomitant]
     Indication: VITAMIN SUPPLEMENTATION
     Route: 060

REACTIONS (1)
  - Nasopharyngitis [Recovered/Resolved]
